FAERS Safety Report 16157170 (Version 1)
Quarter: 2019Q2

REPORT INFORMATION
  Report Type: Spontaneous
  Country: FR (occurrence: FR)
  Receive Date: 20190404
  Receipt Date: 20190404
  Transmission Date: 20190711
  Serious: Yes (Hospitalization)
  Sender: FDA-Public Use
  Company Number: FR-GLAXOSMITHKLINE-FR2019056153

PATIENT
  Age: 53 Year
  Sex: Female

DRUGS (5)
  1. PARACETAMOL EG [Suspect]
     Active Substance: ACETAMINOPHEN
     Indication: MIGRAINE
  2. PARACETAMOL EG [Suspect]
     Active Substance: ACETAMINOPHEN
     Indication: MIGRAINE WITH AURA
     Dosage: DAILY DOSE: UNKNOWN
     Route: 048
     Dates: end: 20060606
  3. IMIGRANE [Suspect]
     Active Substance: SUMATRIPTAN SUCCINATE
     Indication: MIGRAINE WITH AURA
     Dosage: DAILY DOSE: UNKNOWN
     Route: 048
     Dates: end: 20060606
  4. LAMALINE (ATROPA BELLADONNA + CAFFEINE + PAPAVER SOMNIFERUM + PARACETA [Suspect]
     Active Substance: ACETAMINOPHEN\BELLADONNA LEAF\CAFFEINE\OPIUM
     Indication: MIGRAINE
     Dosage: DAILY DOSE: 60 DOSAGE FORMS PER MONTH
     Route: 048
     Dates: end: 20060606
  5. ADVIL [Suspect]
     Active Substance: IBUPROFEN
     Indication: MIGRAINE WITH AURA
     Dosage: DAILY DOSE: 90 DOSAGE FORMS PER MONTH
     Route: 048
     Dates: end: 20060606

REACTIONS (1)
  - Drug withdrawal syndrome [Recovered/Resolved]

NARRATIVE: CASE EVENT DATE: 20060606
